FAERS Safety Report 7748245-7 (Version None)
Quarter: 2011Q3

REPORT INFORMATION
  Report Type: 
  Country: None (occurrence: None)
  Receive Date: 20110913
  Receipt Date: 20110829
  Transmission Date: 20111222
  Serious: Yes (Hospitalization)
  Sender: FDA-Public Use
  Company Number: US-ARROW GEN-2011-14417

PATIENT
  Age: 88 Year
  Sex: Female

DRUGS (6)
  1. DILTIAZEM HYDROCHLORIDE [Suspect]
     Indication: HYPERTENSION
     Dosage: 180 MG, DAILY
  2. CLONIDINE [Suspect]
     Indication: HYPERTENSION
     Dosage: 0.3 MG WEEKLY
     Route: 062
  3. CHLORTHALIDONE [Suspect]
     Indication: HYPERTENSION
     Dosage: 25 MG, UNK
  4. LISINOPRIL [Suspect]
     Indication: HYPERTENSION
     Dosage: 40 MG, UNK
  5. METOPROLOL TARTRATE [Suspect]
     Indication: HYPERTENSION
     Dosage: 50 MG, BID
  6. HYDRALAZINE HCL [Suspect]
     Indication: HYPERTENSION
     Dosage: 50 MG, BID

REACTIONS (4)
  - PRESYNCOPE [None]
  - NODAL RHYTHM [None]
  - FATIGUE [None]
  - BRADYCARDIA [None]
